FAERS Safety Report 11999597 (Version 2)
Quarter: 2016Q2

REPORT INFORMATION
  Report Type: Report from Study
  Country: US (occurrence: US)
  Receive Date: 20160204
  Receipt Date: 20160503
  Transmission Date: 20160815
  Serious: No
  Sender: FDA-Public Use
  Company Number: PHEH2015US001727

PATIENT
  Sex: Female

DRUGS (1)
  1. GILENYA [Suspect]
     Active Substance: FINGOLIMOD HYDROCHLORIDE
     Indication: EXPOSURE VIA BODY FLUID
     Dosage: PATERNAL DRUG EXPOSURE
     Route: 050

REACTIONS (1)
  - Exposure via father [Unknown]
